FAERS Safety Report 23075858 (Version 2)
Quarter: 2023Q4

REPORT INFORMATION
  Report Type: Spontaneous
  Country: FR (occurrence: FR)
  Receive Date: 20231017
  Receipt Date: 20231019
  Transmission Date: 20240110
  Serious: Yes (Other)
  Sender: FDA-Public Use
  Company Number: FR-SUN PHARMACEUTICAL INDUSTRIES LTD-2023RR-412963

PATIENT
  Age: 63 Year
  Sex: Female
  Weight: 53 kg

DRUGS (2)
  1. ATORVASTATIN [Suspect]
     Active Substance: ATORVASTATIN
     Indication: Dyslipidaemia
     Dosage: 80 MILLIGRAM, DAILY
     Route: 048
     Dates: start: 202302, end: 20230407
  2. ASPIRIN [Concomitant]
     Active Substance: ASPIRIN
     Indication: Carotid artery occlusion
     Dosage: 75 MILLIGRAM, DAILY
     Route: 048
     Dates: start: 202302, end: 20230407

REACTIONS (1)
  - Hepatic cytolysis [Recovered/Resolved]

NARRATIVE: CASE EVENT DATE: 20230404
